FAERS Safety Report 4890714-1 (Version None)
Quarter: 2006Q1

REPORT INFORMATION
  Report Type: 
  Country: None (occurrence: None)
  Receive Date: 20060125
  Receipt Date: 20030425
  Transmission Date: 20060701
  Serious: Yes (Other)
  Sender: FDA-Public Use
  Company Number: US-BRISTOL-MYERS SQUIBB COMPANY-12258729

PATIENT
  Age: 31 Year
  Sex: Female

DRUGS (1)
  1. STADOL [Suspect]
     Indication: MIGRAINE
     Route: 045
     Dates: start: 19920901, end: 20000101

REACTIONS (1)
  - DEPENDENCE [None]
